FAERS Safety Report 17925318 (Version 8)
Quarter: 2020Q4

REPORT INFORMATION
  Report Type: Spontaneous
  Country: US (occurrence: US)
  Receive Date: 20200622
  Receipt Date: 20201201
  Transmission Date: 20210113
  Serious: Yes (Hospitalization)
  Sender: FDA-Public Use
  Company Number: US-SEATTLE GENETICS-2020SGN02520

PATIENT
  Sex: Female

DRUGS (4)
  1. TUKYSA [Suspect]
     Active Substance: TUCATINIB
     Indication: BREAST CANCER FEMALE
     Dosage: UNK UNK, BID
  2. CAPECITABINE. [Suspect]
     Active Substance: CAPECITABINE
     Indication: BREAST CANCER FEMALE
     Dosage: 3 DF, BID
  3. TUKYSA [Suspect]
     Active Substance: TUCATINIB
     Indication: BONE CANCER
  4. HERCEPTIN [Concomitant]
     Active Substance: TRASTUZUMAB
     Indication: BREAST CANCER FEMALE

REACTIONS (17)
  - Dehydration [Unknown]
  - Depressed mood [Unknown]
  - Hyperaesthesia [Unknown]
  - Nausea [Unknown]
  - Vomiting [Unknown]
  - Anaemia [Unknown]
  - Unevaluable event [Unknown]
  - Haemorrhage [Unknown]
  - Stomatitis [Unknown]
  - Gait inability [Unknown]
  - Erythema [Unknown]
  - Neuropathy peripheral [Not Recovered/Not Resolved]
  - Electrolyte imbalance [Unknown]
  - Asthenia [Unknown]
  - Feeding disorder [Unknown]
  - Thrombosis [Unknown]
  - Product dose omission issue [Unknown]
